FAERS Safety Report 13160741 (Version 1)
Quarter: 2017Q1

REPORT INFORMATION
  Report Type: Spontaneous
  Country: RU (occurrence: RU)
  Receive Date: 20170129
  Receipt Date: 20170129
  Transmission Date: 20170428
  Serious: Yes (Other)
  Sender: FDA-Public Use
  Company Number: RU-ROCHE-1885860

PATIENT
  Sex: Female

DRUGS (1)
  1. BONVIVA [Suspect]
     Active Substance: IBANDRONATE SODIUM
     Indication: PRODUCT USED FOR UNKNOWN INDICATION
     Dosage: DURING 3 MONTHS
     Route: 065

REACTIONS (3)
  - Gastric haemorrhage [Unknown]
  - Abdominal pain upper [Unknown]
  - Gastritis erosive [Unknown]
